FAERS Safety Report 5490671-3 (Version None)
Quarter: 2007Q4

REPORT INFORMATION
  Report Type: 
  Country: None (occurrence: None)
  Receive Date: 20071019
  Receipt Date: 20071012
  Transmission Date: 20080405
  Serious: Yes (Other)
  Sender: FDA-Public Use
  Company Number: CA-ASTRAZENECA-2006UW18943

PATIENT
  Age: 11 Year
  Sex: Female

DRUGS (3)
  1. SEROQUEL [Suspect]
     Indication: ABNORMAL BEHAVIOUR
     Route: 048
     Dates: start: 20060813, end: 20060903
  2. DIVALPROEX SODIUM [Suspect]
     Indication: MENTAL RETARDATION SEVERITY UNSPECIFIED
     Dosage: 2 TAB/BID
     Dates: start: 20060103, end: 20060604
  3. CLONIDINE [Concomitant]
     Dosage: 2 TABLETS TID

REACTIONS (9)
  - ALOPECIA [None]
  - COORDINATION ABNORMAL [None]
  - DIARRHOEA [None]
  - DYSKINESIA [None]
  - GASTROINTESTINAL DISORDER [None]
  - GASTROINTESTINAL MOTILITY DISORDER [None]
  - PYREXIA [None]
  - RETCHING [None]
  - VOMITING [None]
